FAERS Safety Report 11497461 (Version 3)
Quarter: 2015Q4

REPORT INFORMATION
  Report Type: Spontaneous
  Country: US (occurrence: US)
  Receive Date: 20150911
  Receipt Date: 20151230
  Transmission Date: 20160304
  Serious: Yes (Hospitalization)
  Sender: FDA-Public Use
  Company Number: US-BAYER-2015-421291

PATIENT
  Age: 35 Year
  Sex: Female
  Weight: 81.63 kg

DRUGS (1)
  1. MIRENA [Suspect]
     Active Substance: LEVONORGESTREL
     Indication: CONTRACEPTION
     Dosage: 20 MCG/24HR, CONT
     Route: 015
     Dates: start: 20110608, end: 20140516

REACTIONS (7)
  - Device issue [None]
  - Device dislocation [None]
  - Drug ineffective [None]
  - Pregnancy with contraceptive device [None]
  - Pain [None]
  - Uterine perforation [None]
  - Injury [None]

NARRATIVE: CASE EVENT DATE: 20131009
